FAERS Safety Report 8949584 (Version 2)
Quarter: 2014Q2

REPORT INFORMATION
  Report Type: Report from Study
  Country: CZ (occurrence: CZ)
  Receive Date: 20121206
  Receipt Date: 20140521
  Transmission Date: 20141212
  Serious: Yes (Hospitalization, Other)
  Sender: FDA-Public Use
  Company Number: PHHO2012CZ004196

PATIENT
  Sex: 0

DRUGS (1)
  1. AMN107 [Suspect]
     Dosage: 800 MG, QD
     Route: 048
     Dates: start: 20100810

REACTIONS (3)
  - Concomitant disease progression [Recovered/Resolved]
  - Anaemia [Recovered/Resolved with Sequelae]
  - Angina pectoris [Unknown]
